FAERS Safety Report 4489897-7 (Version None)
Quarter: 2004Q4

REPORT INFORMATION
  Report Type: 
  Country: None (occurrence: None)
  Receive Date: 20041026
  Receipt Date: 20041013
  Transmission Date: 20050328
  Serious: Yes (Hospitalization)
  Sender: FDA-Public Use
  Company Number: 2004AP03343

PATIENT
  Age: 79 Year
  Sex: Male

DRUGS (6)
  1. CASODEX [Suspect]
     Indication: PROSTATE CANCER
     Dosage: 80 MG DAILY PO
     Route: 048
     Dates: start: 20040203, end: 20040216
  2. CASODEX [Suspect]
     Indication: PROSTATE CANCER
     Dosage: 80 MG QOD PO
     Route: 048
     Dates: start: 20040301, end: 20040531
  3. ADONA [Suspect]
     Indication: HAEMOPTYSIS
     Dosage: 200 MG DAILY
     Dates: start: 20040521, end: 20040527
  4. ADONA [Suspect]
     Indication: HAEMOPTYSIS
     Dosage: 90 MG DAILY
     Dates: start: 20040528, end: 20040604
  5. CHLORMADINONE ACETATE TAB [Suspect]
     Indication: PROSTATE CANCER
     Dates: start: 20040224
  6. TRANSAMIN [Suspect]
     Indication: HAEMOPTYSIS
     Dosage: 2 G DAILY
     Dates: start: 20040521, end: 20040527

REACTIONS (5)
  - DRY MOUTH [None]
  - HAEMOPTYSIS [None]
  - LUNG CARCINOMA CELL TYPE UNSPECIFIED RECURRENT [None]
  - PLATELET COUNT DECREASED [None]
  - STOMACH DISCOMFORT [None]
